FAERS Safety Report 17755433 (Version 1)
Quarter: 2020Q2

REPORT INFORMATION
  Report Type: Spontaneous
  Country: US (occurrence: US)
  Receive Date: 20200506
  Receipt Date: 20200506
  Transmission Date: 20200714
  Serious: No
  Sender: FDA-Public Use
  Company Number: None

PATIENT
  Age: 76 Year
  Sex: Female
  Weight: 49.5 kg

DRUGS (12)
  1. HYDROXYCHLOROQUINE [Concomitant]
     Active Substance: HYDROXYCHLOROQUINE
  2. PIQRAY [Suspect]
     Active Substance: ALPELISIB
     Indication: BREAST CANCER FEMALE
     Route: 048
     Dates: start: 20200303, end: 20200506
  3. LOPERAMIDE [Concomitant]
     Active Substance: LOPERAMIDE
  4. LEVETIRACETAM. [Concomitant]
     Active Substance: LEVETIRACETAM
  5. ASPIRIN. [Concomitant]
     Active Substance: ASPIRIN
  6. PIQRAY [Suspect]
     Active Substance: ALPELISIB
     Indication: BREAST CANCER FEMALE
     Route: 048
     Dates: start: 20200303, end: 20200506
  7. SIMVASTATIN. [Concomitant]
     Active Substance: SIMVASTATIN
  8. VERAPAMIL [Concomitant]
     Active Substance: VERAPAMIL HYDROCHLORIDE
  9. LIDOCAINE PRILOCAINE [Concomitant]
     Active Substance: LIDOCAINE\PRILOCAINE
  10. OXYCODONE [Concomitant]
     Active Substance: OXYCODONE
  11. VITAMIN D [Concomitant]
     Active Substance: VITAMIN D NOS
  12. CALCIUM CARBONATE VITAMIN D [Concomitant]
     Active Substance: CALCIUM CARBONATE\VITAMIN D

REACTIONS (1)
  - Disease progression [None]

NARRATIVE: CASE EVENT DATE: 20200506
